FAERS Safety Report 18232377 (Version 1)
Quarter: 2020Q3

REPORT INFORMATION
  Report Type: Spontaneous
  Country: FR (occurrence: FR)
  Receive Date: 20200904
  Receipt Date: 20200904
  Transmission Date: 20201103
  Serious: Yes (Hospitalization)
  Sender: FDA-Public Use
  Company Number: FR-TEVA-2020-FR-1822474

PATIENT
  Age: 86 Year
  Sex: Male
  Weight: 67.5 kg

DRUGS (7)
  1. OLANZAPINE. [Suspect]
     Active Substance: OLANZAPINE
     Indication: COGNITIVE DISORDER
     Dosage: 10MG
     Route: 048
  2. PARACETAMOL [Concomitant]
     Active Substance: ACETAMINOPHEN
     Route: 048
  3. OXAZEPAM. [Concomitant]
     Active Substance: OXAZEPAM
     Route: 048
  4. NORMACOL LAVEMENT ADULTES, SOLUTION RECTALE, RECIPIENT UNIDOSE [Concomitant]
     Route: 054
  5. KARDEGIC [Concomitant]
     Active Substance: ASPIRIN DL-LYSINE
     Dosage: 75MG
     Route: 048
  6. EDUCTYL ADULTES, SUPPOSITOIRE EFFERVESCENT [Concomitant]
     Active Substance: POTASSIUM BITARTRATE\SODIUM BICARBONATE
     Route: 054
  7. LACTULOSE. [Concomitant]
     Active Substance: LACTULOSE
     Dosage: 4 DOSAGE FORMS
     Route: 048

REACTIONS (1)
  - Ischaemic stroke [Recovered/Resolved with Sequelae]

NARRATIVE: CASE EVENT DATE: 20200722
